FAERS Safety Report 13076306 (Version 5)
Quarter: 2017Q1

REPORT INFORMATION
  Report Type: Spontaneous
  Country: IT (occurrence: IT)
  Receive Date: 20161230
  Receipt Date: 20170317
  Transmission Date: 20170428
  Serious: Yes (Other)
  Sender: FDA-Public Use
  Company Number: IT-009507513-1612ITA013808

PATIENT
  Age: 67 Year
  Sex: Male
  Weight: 73 kg

DRUGS (2)
  1. BRIDION [Suspect]
     Active Substance: SUGAMMADEX
     Indication: NEUROMUSCULAR BLOCKADE REVERSAL
     Dosage: 10 MG/KG WITH 3 DIVIDED DOSES, 4 MG/KG, 4 MG/KG, 2 MG/KG
     Route: 042
     Dates: start: 20161219, end: 20161219
  2. ROCURONIUM BROMIDE. [Concomitant]
     Active Substance: ROCURONIUM BROMIDE
     Indication: GENERAL ANAESTHESIA
     Dosage: CONTINUOUS INFUSION, 0.5 ML/KG/H
     Dates: start: 20161219

REACTIONS (3)
  - Respiratory failure [Recovered/Resolved]
  - Diplopia [Recovered/Resolved]
  - Dysphagia [Recovered/Resolved]

NARRATIVE: CASE EVENT DATE: 20161219
